FAERS Safety Report 26141002 (Version 1)
Quarter: 2025Q4

REPORT INFORMATION
  Report Type: Spontaneous
  Country: EU (occurrence: EU)
  Receive Date: 20251210
  Receipt Date: 20251210
  Transmission Date: 20260118
  Serious: Yes (Other)
  Sender: TEVA
  Company Number: None

PATIENT
  Age: 45 Year
  Sex: Male

DRUGS (1)
  1. DASATINIB [Suspect]
     Active Substance: DASATINIB
     Indication: Chronic myeloid leukaemia
     Route: 048
     Dates: start: 20240205, end: 20250520

REACTIONS (2)
  - Cholestasis [Recovered/Resolved]
  - Hepatic cytolysis [Recovered/Resolved]

NARRATIVE: CASE EVENT DATE: 20250501
